FAERS Safety Report 6104732-9 (Version None)
Quarter: 2009Q1

REPORT INFORMATION
  Report Type: 
  Country: None (occurrence: None)
  Receive Date: 20090304
  Receipt Date: 20090226
  Transmission Date: 20090719
  Serious: Yes (Hospitalization)
  Sender: FDA-Public Use
  Company Number: PAR_02856_2009

PATIENT
  Sex: Male
  Weight: 104.7809 kg

DRUGS (7)
  1. QUESTRAN [Suspect]
     Indication: CROHN'S DISEASE
     Dosage: DF
  2. REMICADE [Suspect]
     Indication: CROHN'S DISEASE
     Dosage: DF INTRAVENOUS (NOT OTHERWISE SPECIFIED), 5 MG/KG INTRAVENOUS (NOT OTHERWISE SPECIFIED)), 5 MG/KG IN
     Route: 042
     Dates: start: 19990617
  3. REMICADE [Suspect]
     Indication: CROHN'S DISEASE
     Dosage: DF INTRAVENOUS (NOT OTHERWISE SPECIFIED), 5 MG/KG INTRAVENOUS (NOT OTHERWISE SPECIFIED)), 5 MG/KG IN
     Route: 042
     Dates: start: 19991116
  4. REMICADE [Suspect]
     Indication: CROHN'S DISEASE
     Dosage: DF INTRAVENOUS (NOT OTHERWISE SPECIFIED), 5 MG/KG INTRAVENOUS (NOT OTHERWISE SPECIFIED)), 5 MG/KG IN
     Route: 042
     Dates: start: 20010118
  5. REMICADE [Suspect]
     Indication: CROHN'S DISEASE
     Dosage: DF INTRAVENOUS (NOT OTHERWISE SPECIFIED), 5 MG/KG INTRAVENOUS (NOT OTHERWISE SPECIFIED)), 5 MG/KG IN
     Route: 042
     Dates: start: 20010806
  6. VITAMIN B12 /00056201/ (NOT SPECIFIED) [Suspect]
     Indication: CROHN'S DISEASE
     Dosage: DF
  7. HUMIRA [Suspect]
     Indication: CROHN'S DISEASE
     Dosage: DF

REACTIONS (2)
  - DEHYDRATION [None]
  - UNEVALUABLE EVENT [None]
